FAERS Safety Report 5480687-5 (Version None)
Quarter: 2007Q4

REPORT INFORMATION
  Report Type: 
  Country: None (occurrence: None)
  Receive Date: 20071003
  Receipt Date: 20070917
  Transmission Date: 20080405
  Serious: Yes (Disabling)
  Sender: FDA-Public Use
  Company Number: ANTA0700176

PATIENT
  Age: 85 Year
  Sex: Male
  Weight: 69.4 kg

DRUGS (10)
  1. FENOFIBRATE [Suspect]
     Indication: DRUG USE FOR UNKNOWN INDICATION
     Dosage: QD, ORAL
     Route: 048
     Dates: start: 20050101, end: 20051101
  2. COUMADIN [Concomitant]
  3. CORDARONE [Concomitant]
  4. DIGOXIN [Concomitant]
  5. ACCUPRIL [Concomitant]
  6. SIMVASTATIN [Concomitant]
  7. IRON (FERROUS SULFATE) [Concomitant]
  8. INSULIN [Concomitant]
  9. ICAPS (MINERALS NOS, VITAMINS NOS) [Concomitant]
  10. ASPIRIN [Concomitant]

REACTIONS (7)
  - DISEASE PROGRESSION [None]
  - EYE HAEMORRHAGE [None]
  - INTERNATIONAL NORMALISED RATIO INCREASED [None]
  - MACULAR DEGENERATION [None]
  - MACULAR OEDEMA [None]
  - MACULAR SCAR [None]
  - OCULAR HYPERAEMIA [None]
